FAERS Safety Report 11191859 (Version 1)
Quarter: 2015Q2

REPORT INFORMATION
  Report Type: Report from Study
  Country: FR (occurrence: FR)
  Receive Date: 20150616
  Receipt Date: 20150616
  Transmission Date: 20150821
  Serious: Yes (Hospitalization)
  Sender: FDA-Public Use
  Company Number: PHHY2010FR74977

PATIENT
  Age: 73 Year
  Sex: Male

DRUGS (14)
  1. AMN107 [Suspect]
     Active Substance: NILOTINIB
     Indication: CHRONIC MYELOID LEUKAEMIA
     Dosage: 400 MG, BID
     Route: 048
     Dates: start: 20100703, end: 20100722
  2. METFORMINE [Concomitant]
     Active Substance: METFORMIN HYDROCHLORIDE
     Dosage: UNK
  3. ISOPTIN [Concomitant]
     Active Substance: VERAPAMIL HYDROCHLORIDE
     Dosage: UNK
  4. PREVISCAN [Concomitant]
     Active Substance: FLUINDIONE
     Dosage: UNK
  5. FUROSEMIDE. [Concomitant]
     Active Substance: FUROSEMIDE
     Dosage: UNK
  6. DIGOXINE [Concomitant]
     Active Substance: DIGOXIN
     Dosage: 0.25 MG
  7. ALLOPURINOL. [Concomitant]
     Active Substance: ALLOPURINOL
     Dosage: UNK
  8. AMAREL [Concomitant]
     Active Substance: GLIMEPIRIDE
     Dosage: UNK
  9. NOCTRAN [Concomitant]
     Active Substance: ACEPROMAZINE MALEATE\ACEPROMETAZINE\CLORAZEPATE DIPOTASSIUM
     Dosage: UNK
  10. TRIATEC [Concomitant]
     Active Substance: RAMIPRIL
     Dosage: UNK
  11. ATIVAN [Concomitant]
     Active Substance: LORAZEPAM
     Dosage: UNK
  12. TAHOR [Concomitant]
     Active Substance: ATORVASTATIN CALCIUM
     Dosage: UNK
  13. SERETIDE [Concomitant]
     Active Substance: FLUTICASONE FUROATE\SALMETEROL XINAFOATE
     Dosage: UNK
  14. NASACORT [Concomitant]
     Active Substance: TRIAMCINOLONE ACETONIDE
     Dosage: UNK

REACTIONS (4)
  - Hyperglycaemia [Recovered/Resolved]
  - Concomitant disease aggravated [Unknown]
  - Drug intolerance [Unknown]
  - Diabetes mellitus [Unknown]

NARRATIVE: CASE EVENT DATE: 20100704
